FAERS Safety Report 9407502 (Version 1)
Quarter: 2013Q3

REPORT INFORMATION
  Report Type: Spontaneous
  Country: US (occurrence: US)
  Receive Date: 20130718
  Receipt Date: 20130718
  Transmission Date: 20140515
  Serious: No
  Sender: FDA-Public Use
  Company Number: US-009507513-1307USA007548

PATIENT
  Age: 28 Year
  Sex: Male

DRUGS (1)
  1. SAPHRIS [Suspect]
     Indication: SUICIDAL BEHAVIOUR
     Dosage: 5 MG, QD
     Route: 048

REACTIONS (8)
  - Libido decreased [Unknown]
  - Insomnia [Unknown]
  - Musculoskeletal stiffness [Unknown]
  - Product taste abnormal [Unknown]
  - Sleep disorder [Unknown]
  - Elevated mood [Unknown]
  - Incorrect dose administered [Unknown]
  - Inappropriate schedule of drug administration [Unknown]
